FAERS Safety Report 18373613 (Version 1)
Quarter: 2020Q4

REPORT INFORMATION
  Report Type: Report from Study
  Country: US (occurrence: US)
  Receive Date: 20201012
  Receipt Date: 20201012
  Transmission Date: 20210114
  Serious: Yes (Hospitalization, Other)
  Sender: FDA-Public Use
  Company Number: US-PFIZER INC-2020174203

PATIENT
  Age: 61 Year
  Sex: Male

DRUGS (2)
  1. SUTENT [Suspect]
     Active Substance: SUNITINIB MALATE
     Dosage: 37.5 MG, ONCE DAILY (2 WEEKS ON, 1 WEEK OFF)
     Route: 048
  2. SUTENT [Suspect]
     Active Substance: SUNITINIB MALATE
     Indication: GASTROINTESTINAL STROMAL TUMOUR
     Dosage: 37.5 MG, 1X/DAY (ONCE DAILY CONTINUOUSLY)
     Route: 048
     Dates: start: 20200424

REACTIONS (18)
  - Haematochezia [Unknown]
  - Weight decreased [Not Recovered/Not Resolved]
  - Chills [Unknown]
  - Bone pain [Unknown]
  - Decreased appetite [Unknown]
  - Abdominal discomfort [Unknown]
  - Pharyngeal haemorrhage [Unknown]
  - Vomiting [Not Recovered/Not Resolved]
  - Sleep deficit [Unknown]
  - Pulmonary thrombosis [Unknown]
  - Haematemesis [Unknown]
  - Asthenia [Unknown]
  - Thrombosis [Unknown]
  - Pharyngeal mass [Unknown]
  - Diarrhoea [Not Recovered/Not Resolved]
  - Glossodynia [Unknown]
  - Fatigue [Unknown]
  - Haemoglobin decreased [Unknown]

NARRATIVE: CASE EVENT DATE: 2020
